FAERS Safety Report 5338938-3 (Version None)
Quarter: 2007Q2

REPORT INFORMATION
  Report Type: 
  Country: None (occurrence: None)
  Receive Date: 20070530
  Receipt Date: 20070521
  Transmission Date: 20071010
  Serious: Yes (Other)
  Sender: FDA-Public Use
  Company Number: US-PFIZER INC-2007036652

PATIENT
  Sex: Male

DRUGS (8)
  1. INHALED HUMAN INSULIN [Suspect]
     Indication: BLOOD GLUCOSE
  2. INHALED HUMAN INSULIN [Suspect]
  3. LANTUS [Concomitant]
  4. VYTORIN [Concomitant]
  5. LISINOPRIL [Concomitant]
  6. METOPROLOL SUCCINATE [Concomitant]
  7. PLAVIX [Concomitant]
  8. ASPIRIN [Concomitant]

REACTIONS (6)
  - BLOOD GLUCOSE DECREASED [None]
  - BLOOD GLUCOSE INCREASED [None]
  - CONFUSIONAL STATE [None]
  - CONTUSION [None]
  - FALL [None]
  - SKIN LACERATION [None]
